FAERS Safety Report 24704420 (Version 1)
Quarter: 2024Q4

REPORT INFORMATION
  Report Type: Report from Study
  Country: DE (occurrence: DE)
  Receive Date: 20241206
  Receipt Date: 20241206
  Transmission Date: 20250114
  Serious: Yes (Other)
  Sender: ROCHE
  Company Number: DE-ML39632-2372728-0

PATIENT
  Age: 43 Year
  Sex: Male
  Weight: 93 kg

DRUGS (7)
  1. OCREVUS [Suspect]
     Active Substance: OCRELIZUMAB
     Indication: Multiple sclerosis
     Route: 042
     Dates: start: 20181022, end: 20181105
  2. OCREVUS [Suspect]
     Active Substance: OCRELIZUMAB
     Route: 042
     Dates: start: 20190430
  3. MAGNESIUM [Concomitant]
     Active Substance: MAGNESIUM
     Route: 048
  4. MOMETASONE FUROATE [Concomitant]
     Active Substance: MOMETASONE FUROATE
     Route: 045
  5. Interferon beta 1 b [Concomitant]
     Dates: start: 201311, end: 201312
  6. NATALIZUMAB [Concomitant]
     Active Substance: NATALIZUMAB
     Dates: start: 201606, end: 201704
  7. Dimethylfumarat [Concomitant]
     Dates: start: 201402, end: 201605

REACTIONS (2)
  - Pneumonia pseudomonal [Not Recovered/Not Resolved]
  - Haemophilus infection [Not Recovered/Not Resolved]

NARRATIVE: CASE EVENT DATE: 20241007
